FAERS Safety Report 21252334 (Version 5)
Quarter: 2023Q1

REPORT INFORMATION
  Report Type: Report from Study
  Country: JP (occurrence: JP)
  Receive Date: 20220825
  Receipt Date: 20230314
  Transmission Date: 20230418
  Serious: Yes (Hospitalization)
  Sender: FDA-Public Use
  Company Number: JP-TAKEDA-2022TJP016259

PATIENT
  Age: 77 Year
  Sex: Male
  Weight: 36 kg

DRUGS (14)
  1. TEDUGLUTIDE [Suspect]
     Active Substance: TEDUGLUTIDE
     Indication: Short-bowel syndrome
     Dosage: 0.025 MILLIGRAM/KILOGRAM, QD
     Route: 058
     Dates: start: 20211220, end: 20220202
  2. TEDUGLUTIDE [Suspect]
     Active Substance: TEDUGLUTIDE
     Indication: Short-bowel syndrome
     Dosage: 0.025 MILLIGRAM/KILOGRAM, QD
     Route: 058
     Dates: start: 20211220, end: 20220202
  3. TEDUGLUTIDE [Suspect]
     Active Substance: TEDUGLUTIDE
     Indication: Short-bowel syndrome
     Dosage: 0.025 MILLIGRAM/KILOGRAM, QD
     Route: 058
     Dates: start: 20211220, end: 20220202
  4. TEDUGLUTIDE [Suspect]
     Active Substance: TEDUGLUTIDE
     Indication: Short-bowel syndrome
     Dosage: 0.025 MILLIGRAM/KILOGRAM, QD
     Route: 058
     Dates: start: 20211220, end: 20220202
  5. TEDUGLUTIDE [Suspect]
     Active Substance: TEDUGLUTIDE
     Dosage: 0.025 MILLIGRAM/KILOGRAM, QD
     Route: 058
     Dates: start: 20220314, end: 20220421
  6. TEDUGLUTIDE [Suspect]
     Active Substance: TEDUGLUTIDE
     Dosage: 0.025 MILLIGRAM/KILOGRAM, QD
     Route: 058
     Dates: start: 20220314, end: 20220421
  7. TEDUGLUTIDE [Suspect]
     Active Substance: TEDUGLUTIDE
     Dosage: 0.025 MILLIGRAM/KILOGRAM, QD
     Route: 058
     Dates: start: 20220314, end: 20220421
  8. TEDUGLUTIDE [Suspect]
     Active Substance: TEDUGLUTIDE
     Dosage: 0.025 MILLIGRAM/KILOGRAM, QD
     Route: 058
     Dates: start: 20220314, end: 20220421
  9. HALOPERIDOL [Concomitant]
     Active Substance: HALOPERIDOL
     Dosage: UNK
     Route: 065
  10. DESYREL [Concomitant]
     Active Substance: TRAZODONE HYDROCHLORIDE
     Dosage: UNK
     Route: 065
  11. LUNESTA [Concomitant]
     Active Substance: ESZOPICLONE
     Dosage: UNK
     Route: 065
  12. BIO-THREE [Concomitant]
     Active Substance: HERBALS
     Dosage: UNK
     Route: 065
  13. ELIQUIS [Concomitant]
     Active Substance: APIXABAN
     Dosage: UNK
     Route: 065
  14. NEXIUM [Concomitant]
     Active Substance: ESOMEPRAZOLE MAGNESIUM
     Dosage: UNK
     Route: 065

REACTIONS (3)
  - Hypoalbuminaemia [Recovered/Resolved]
  - Hypoalbuminaemia [Recovered/Resolved]
  - Underdose [Recovered/Resolved]

NARRATIVE: CASE EVENT DATE: 20211220
